FAERS Safety Report 16303368 (Version 3)
Quarter: 2023Q4

REPORT INFORMATION
  Report Type: Spontaneous
  Country: ES (occurrence: ES)
  Receive Date: 20190513
  Receipt Date: 20231231
  Transmission Date: 20240110
  Serious: Yes (Other)
  Sender: FDA-Public Use
  Company Number: ES-AUROBINDO-AUR-APL-2019-025096

PATIENT
  Age: 77 Year
  Sex: Female

DRUGS (1)
  1. CAPECITABINE [Suspect]
     Active Substance: CAPECITABINE
     Indication: Colon cancer
     Dosage: UNK
     Route: 065

REACTIONS (8)
  - Ileal ulcer [Unknown]
  - Rectal haemorrhage [Unknown]
  - Hypoalbuminaemia [Unknown]
  - Enteritis [Unknown]
  - Diarrhoea [Unknown]
  - Abdominal pain [Unknown]
  - Hypocalcaemia [Unknown]
  - Toxicity to various agents [Unknown]
